FAERS Safety Report 24902875 (Version 1)
Quarter: 2025Q1

REPORT INFORMATION
  Report Type: Spontaneous
  Country: CN (occurrence: CN)
  Receive Date: 20250130
  Receipt Date: 20250130
  Transmission Date: 20250408
  Serious: Yes (Other)
  Sender: NOVITIUM PHARMA
  Company Number: CN-NOVITIUMPHARMA-2025CNNVP00250

PATIENT
  Age: 28 Year
  Sex: Male

DRUGS (3)
  1. DEXAMETHASONE [Suspect]
     Active Substance: DEXAMETHASONE
     Indication: B-cell type acute leukaemia
  2. DEXAMETHASONE [Suspect]
     Active Substance: DEXAMETHASONE
  3. VINDESINE [Concomitant]
     Active Substance: VINDESINE
     Indication: B-cell type acute leukaemia

REACTIONS (3)
  - Arthritis bacterial [Recovered/Resolved]
  - Pneumonia klebsiella [Recovered/Resolved]
  - Granulocytopenia [Recovered/Resolved]
